FAERS Safety Report 10279793 (Version 1)
Quarter: 2014Q3

REPORT INFORMATION
  Report Type: Report from Study
  Country: AU (occurrence: None)
  Receive Date: 20140702
  Receipt Date: 20140702
  Transmission Date: 20150326
  Serious: Yes (Hospitalization, Other)
  Sender: FDA-Public Use
  Company Number: KAD201406-000674

PATIENT
  Age: 53 Year
  Sex: Male
  Weight: 79.7 kg

DRUGS (11)
  1. THIAMINE(THIAMINE)(THIAMINE) [Concomitant]
  2. TESTOSTERONE(TESTOSTERONE)(TESTOSTERONE) [Concomitant]
  3. FRUSEMIDE(FUROSEMIDE)(FUROSEMIDE) [Concomitant]
  4. MULTI-VITAMIN(MULTI-VITAMIN)(MULTI-VITAMIN) [Concomitant]
  5. NEXIUM(ESOMEPRAZOLE)(ESOMEPRAZOLE) [Concomitant]
  6. RIBAVIRIN(RIBAVIRIN) [Suspect]
     Active Substance: RIBAVIRIN
     Route: 048
     Dates: start: 20140520, end: 20130523
  7. NORFLOXACIN(NORFLOXACIN)(NORFLOXACIN) [Concomitant]
  8. LACTULOSE(LACTULOSE)(LACTULOSE) [Concomitant]
  9. SPIRONOLACTONE(SPIRONOLACTONE)(SPIRONOLACTONE) [Concomitant]
  10. NEXIUM(ESOMEPRAZOLE)(ESOMEPRAZOLE) [Concomitant]
  11. SOFOSBUVIR/LEDIPASVIR [Suspect]
     Active Substance: LEDIPASVIR\SOFOSBUVIR
     Dosage: 1 DOSE
     Route: 048
     Dates: start: 20140520

REACTIONS (1)
  - Lethargy [None]

NARRATIVE: CASE EVENT DATE: 20140522
